APPROVED DRUG PRODUCT: SPIRIVA
Active Ingredient: TIOTROPIUM BROMIDE
Strength: EQ 0.018MG BASE/INH
Dosage Form/Route: POWDER;INHALATION
Application: N021395 | Product #001 | TE Code: AB
Applicant: BOEHRINGER INGELHEIM PHARMACEUTICALS INC
Approved: Jan 30, 2004 | RLD: Yes | RS: Yes | Type: RX

PATENTS:
Patent 8022082 | Expires: Jan 19, 2026
Patent 8022082*PED | Expires: Jul 19, 2026